FAERS Safety Report 22379292 (Version 2)
Quarter: 2023Q2

REPORT INFORMATION
  Report Type: Spontaneous
  Country: US (occurrence: US)
  Receive Date: 20230529
  Receipt Date: 20230602
  Transmission Date: 20230721
  Serious: Yes (Hospitalization, Other)
  Sender: FDA-Public Use
  Company Number: US-GLAXOSMITHKLINE-US2023AMR074159

PATIENT
  Sex: Female
  Weight: 79.379 kg

DRUGS (8)
  1. LAMICTAL [Suspect]
     Active Substance: LAMOTRIGINE
     Indication: Mood swings
     Dosage: 25 MG, 1 TAB EVERY HOURS WEEK 1 AND 2 AND THEN ON 2 TAB EVERY HOURS
     Route: 048
  2. TRAZODONE [Concomitant]
     Active Substance: TRAZODONE HYDROCHLORIDE
     Indication: Insomnia
     Dosage: 1 DF, QD, 50 MG 1 TAB AT BEDTIME
     Route: 048
  3. ABILIFY [Concomitant]
     Active Substance: ARIPIPRAZOLE
     Indication: Depression
     Dosage: 1 DF, 5MG, EVERY MORNING
     Route: 048
  4. FLUOXETINE [Concomitant]
     Active Substance: FLUOXETINE HYDROCHLORIDE
     Indication: Depression
     Dosage: 1 DF, QD, EVERY MORNING, 40 MG
     Route: 048
  5. ALPRAZOLAM [Concomitant]
     Active Substance: ALPRAZOLAM
     Indication: Anxiety
     Dosage: 1 DF, AS NEEDED, 0.25 MG
     Route: 048
  6. XANAX [Concomitant]
     Active Substance: ALPRAZOLAM
     Indication: Product used for unknown indication
     Dosage: UNK
  7. REMERON [Concomitant]
     Active Substance: MIRTAZAPINE
     Indication: Product used for unknown indication
     Dosage: 15 MG, 1 TAB EVERY HOUR
     Route: 048
  8. PROZAC [Concomitant]
     Active Substance: FLUOXETINE HYDROCHLORIDE
     Indication: Product used for unknown indication
     Dosage: UNK

REACTIONS (17)
  - Stevens-Johnson syndrome [Unknown]
  - Rash [Recovering/Resolving]
  - Conjunctivitis [Unknown]
  - Oropharyngeal candidiasis [Unknown]
  - Stomatitis [Unknown]
  - Oropharyngeal pain [Unknown]
  - Dysuria [Unknown]
  - Pruritus [Recovering/Resolving]
  - Swelling face [Unknown]
  - Hypersensitivity [Unknown]
  - Ocular discomfort [Unknown]
  - Feeling abnormal [Unknown]
  - Depressed mood [Unknown]
  - Stress [Unknown]
  - Urinary tract infection [Unknown]
  - Eye disorder [Unknown]
  - Depression [Unknown]
